FAERS Safety Report 16837473 (Version 14)
Quarter: 2021Q1

REPORT INFORMATION
  Report Type: Report from Study
  Country: JP (occurrence: JP)
  Receive Date: 20190923
  Receipt Date: 20210113
  Transmission Date: 20210419
  Serious: Yes (Other)
  Sender: FDA-Public Use
  Company Number: JP-ASTELLAS-2019JP019863

PATIENT
  Age: 45 Year
  Sex: Female
  Weight: 51 kg

DRUGS (15)
  1. ASP2215 [Suspect]
     Active Substance: GILTERITINIB
     Route: 048
     Dates: start: 20191217, end: 20200127
  2. ASP2215 [Suspect]
     Active Substance: GILTERITINIB
     Route: 048
     Dates: start: 20200128
  3. URSO [Concomitant]
     Active Substance: URSODIOL
     Indication: PROPHYLAXIS
     Dosage: 300 MG/ DAY, UNKNOWN FREQ.
     Route: 048
  4. ENDOXAN [CYCLOPHOSPHAMIDE] [Concomitant]
     Active Substance: CYCLOPHOSPHAMIDE
     Indication: ACUTE MYELOID LEUKAEMIA REFRACTORY
     Dosage: 60 MG/ DAY, UNKNOWN FREQ.
     Route: 065
     Dates: start: 20191006, end: 20191007
  5. RABEPRAZOLE NA [Concomitant]
     Active Substance: RABEPRAZOLE SODIUM
     Indication: PROPHYLAXIS
     Dosage: 10 MG/ DAY, UNKNOWN FREQ.
     Route: 048
  6. ASP2215 [Suspect]
     Active Substance: GILTERITINIB
     Indication: ACUTE MYELOID LEUKAEMIA REFRACTORY
     Dosage: UNK UNK, UNKNOWN FREQ.
     Route: 048
     Dates: start: 20190718
  7. NEORAL [Concomitant]
     Active Substance: CYCLOSPORINE
     Indication: PROPHYLAXIS AGAINST GRAFT VERSUS HOST DISEASE
     Dosage: 100 MG/ DAY, UNKNOWN FREQ.
     Route: 048
     Dates: start: 20191111
  8. MAALOX [ALUMINIUM HYDROXIDE GEL;MAGNESIUM HYDROXIDE] [Concomitant]
     Active Substance: ALUMINUM HYDROXIDE\MAGNESIUM HYDROXIDE
     Indication: PROPHYLAXIS
     Dosage: 3.6 G/ DAY, UNKNOWN FREQ.
     Route: 048
  9. FLUCONAZOLE. [Suspect]
     Active Substance: FLUCONAZOLE
     Indication: PROPHYLAXIS
     Dosage: 200 MG/ DAY, UNKNOWN FREQ.
     Route: 048
  10. ASP2215 [Suspect]
     Active Substance: GILTERITINIB
     Route: 048
     Dates: start: 20190828, end: 20191002
  11. PREDONINE [Concomitant]
     Active Substance: PREDNISOLONE
     Indication: GRAFT VERSUS HOST DISEASE
     Dosage: 17.5 MG/ DAY, UNKNOWN FREQ.
     Route: 048
     Dates: end: 20201121
  12. ASP2215 [Suspect]
     Active Substance: GILTERITINIB
     Route: 048
     Dates: start: 20191210, end: 20191216
  13. PREVYMIS [Concomitant]
     Active Substance: LETERMOVIR
     Indication: PROPHYLAXIS
     Dosage: 240 MG/ DAY, UNKNOWN FREQ.
     Route: 048
     Dates: end: 20200107
  14. ACICLOVIR [Concomitant]
     Active Substance: ACYCLOVIR
     Indication: PROPHYLAXIS
     Dosage: 200 MG/ DAY, UNKNOWN FREQ.
     Route: 048
  15. BAKTAR [Concomitant]
     Active Substance: SULFAMETHOXAZOLE\TRIMETHOPRIM
     Indication: PROPHYLAXIS
     Dosage: 1.5 TABLET/ WEEK, UNKNOWN FREQ.
     Route: 048

REACTIONS (8)
  - Hepatic function abnormal [Recovered/Resolved]
  - Blood creatine phosphokinase increased [Recovered/Resolved]
  - Liver abscess [Recovering/Resolving]
  - Hepatic function abnormal [Recovering/Resolving]
  - Drug interaction [Unknown]
  - Aspartate aminotransferase increased [Not Recovered/Not Resolved]
  - Pancytopenia [Recovered/Resolved]
  - Alanine aminotransferase increased [Not Recovered/Not Resolved]

NARRATIVE: CASE EVENT DATE: 20191217
